FAERS Safety Report 20418053 (Version 1)
Quarter: 2022Q1

REPORT INFORMATION
  Report Type: Spontaneous
  Country: IT (occurrence: IT)
  Receive Date: 20220202
  Receipt Date: 20220202
  Transmission Date: 20220423
  Serious: Yes (Hospitalization)
  Sender: FDA-Public Use
  Company Number: IT-SA-2022SA032449

PATIENT
  Age: 41 Year
  Sex: Female

DRUGS (3)
  1. ALEMTUZUMAB [Suspect]
     Active Substance: ALEMTUZUMAB
     Indication: Relapsing-remitting multiple sclerosis
     Dosage: UNK UNK, QCY
     Route: 042
     Dates: start: 201909, end: 201909
  2. ACYCLOVIR [Concomitant]
     Active Substance: ACYCLOVIR
     Indication: Varicella zoster virus infection
     Dosage: 200 MG, BID
     Route: 048
  3. ACYCLOVIR [Concomitant]
     Active Substance: ACYCLOVIR
     Dosage: UNK
     Route: 042

REACTIONS (5)
  - Influenza [Unknown]
  - Varicella zoster virus infection [Unknown]
  - Herpes zoster reactivation [Unknown]
  - Upper respiratory tract infection [Unknown]
  - Infection [Unknown]

NARRATIVE: CASE EVENT DATE: 20190101
